FAERS Safety Report 24043928 (Version 3)
Quarter: 2024Q3

REPORT INFORMATION
  Report Type: Spontaneous
  Country: MT (occurrence: MT)
  Receive Date: 20240703
  Receipt Date: 20240731
  Transmission Date: 20241017
  Serious: No
  Sender: MENARINI
  Company Number: MT-MEN-2024-096690

PATIENT
  Age: 73 Year
  Sex: Male

DRUGS (2)
  1. RANEXA [Suspect]
     Active Substance: RANOLAZINE
     Indication: Angina pectoris
     Route: 048
  2. RANEXA [Suspect]
     Active Substance: RANOLAZINE
     Indication: Angina pectoris
     Dosage: 500 MG
     Route: 048

REACTIONS (2)
  - Constipation [Recovering/Resolving]
  - Hiccups [Recovering/Resolving]
